FAERS Safety Report 5994600-5 (Version None)
Quarter: 2008Q4

REPORT INFORMATION
  Report Type: 
  Country: None (occurrence: None)
  Receive Date: 20081209
  Receipt Date: 20081008
  Transmission Date: 20090506
  Serious: No
  Sender: FDA-Public Use
  Company Number: 002#2#2008-00699

PATIENT
  Age: 83 Year
  Sex: Female

DRUGS (1)
  1. NEUPRO [Suspect]
     Dosage: 2MG/24H,1 IN 1 D,TRANSDERMAL ; 4MG/24H,1 IN 1 D,TRANSDERMAL ; 6MG/24H,1 IN 1 D,TRANSDERMAL
     Route: 062

REACTIONS (1)
  - SOMNOLENCE [None]
